FAERS Safety Report 11526836 (Version 1)
Quarter: 2015Q3

REPORT INFORMATION
  Report Type: Spontaneous
  Country: US (occurrence: US)
  Receive Date: 20150903
  Receipt Date: 20150903
  Transmission Date: 20151125
  Serious: Yes (Other)
  Sender: FDA-Public Use
  Company Number: US-ELI_LILLY_AND_COMPANY-US201404000317

PATIENT
  Age: 52 Year
  Sex: Female

DRUGS (2)
  1. CYMBALTA [Suspect]
     Active Substance: DULOXETINE HYDROCHLORIDE
     Indication: DEPRESSION
     Dosage: 60 MG, BID
     Route: 065
     Dates: start: 2006, end: 201401
  2. CYMBALTA [Suspect]
     Active Substance: DULOXETINE HYDROCHLORIDE
     Indication: FIBROMYALGIA

REACTIONS (11)
  - Depression [Unknown]
  - Fall [Unknown]
  - Tooth injury [Unknown]
  - Muscular weakness [Unknown]
  - Pain [Unknown]
  - Withdrawal syndrome [Unknown]
  - Arthralgia [Unknown]
  - Contusion [Unknown]
  - Suicidal ideation [Unknown]
  - Migraine [Unknown]
  - Intentional product misuse [Unknown]

NARRATIVE: CASE EVENT DATE: 201401
